FAERS Safety Report 6191641-2 (Version None)
Quarter: 2009Q2

REPORT INFORMATION
  Report Type: 
  Country: None (occurrence: None)
  Receive Date: 20090515
  Receipt Date: 20090505
  Transmission Date: 20091009
  Serious: Yes (Other)
  Sender: FDA-Public Use
  Company Number: US-PFIZER INC-2008007073

PATIENT
  Sex: Female

DRUGS (1)
  1. BEXTRA [Suspect]

REACTIONS (13)
  - DERMATITIS [None]
  - DERMATITIS BULLOUS [None]
  - DYSHIDROSIS [None]
  - ECZEMA [None]
  - HEADACHE [None]
  - OROPHARYNGEAL PAIN [None]
  - PHARYNGITIS [None]
  - RASH [None]
  - RHINITIS ALLERGIC [None]
  - SKIN EXFOLIATION [None]
  - STEVENS-JOHNSON SYNDROME [None]
  - URTICARIA [None]
  - VAGINAL ODOUR [None]
